FAERS Safety Report 20538900 (Version 1)
Quarter: 2022Q1

REPORT INFORMATION
  Report Type: Report from Study
  Country: US (occurrence: US)
  Receive Date: 20220302
  Receipt Date: 20220302
  Transmission Date: 20220423
  Serious: Yes (Hospitalization, Other)
  Sender: FDA-Public Use
  Company Number: US-JAZZ-2022-US-004680

PATIENT
  Sex: Female

DRUGS (13)
  1. XYREM [Suspect]
     Active Substance: SODIUM OXYBATE
     Indication: Narcolepsy
     Dosage: UNK
  2. XYREM [Suspect]
     Active Substance: SODIUM OXYBATE
     Indication: Cataplexy
  3. XYREM [Suspect]
     Active Substance: SODIUM OXYBATE
     Indication: Somnolence
  4. GABAPENTIN [Concomitant]
     Active Substance: GABAPENTIN
     Indication: Product use in unapproved indication
     Dosage: 0000
     Dates: start: 20110801
  5. ATROVENT HFA [Concomitant]
     Active Substance: IPRATROPIUM BROMIDE
     Indication: Product use in unapproved indication
     Dosage: 0000
     Dates: start: 20160126
  6. PROPRANOLOL [Concomitant]
     Active Substance: PROPRANOLOL HYDROCHLORIDE
     Indication: Product use in unapproved indication
     Dosage: UNK
     Dates: start: 20170201
  7. NALTREXONE [Concomitant]
     Active Substance: NALTREXONE
     Indication: Product use in unapproved indication
     Dosage: UNK
     Dates: start: 20200818
  8. CLONAZEPAM [Concomitant]
     Active Substance: CLONAZEPAM
     Indication: Product use in unapproved indication
     Dosage: 0000
     Dates: start: 20201003
  9. BACLOFEN [Concomitant]
     Active Substance: BACLOFEN
     Indication: Product use in unapproved indication
     Dosage: UNK
     Dates: start: 20201003
  10. NYSTATIN [Concomitant]
     Active Substance: NYSTATIN
     Indication: Product use in unapproved indication
     Dosage: 100,000 UNIT/GM
     Dates: start: 20210416
  11. PRIMIDONE [Concomitant]
     Active Substance: PRIMIDONE
     Indication: Product use in unapproved indication
     Dosage: UNK
     Dates: start: 20210607
  12. TOPAMAX [Concomitant]
     Active Substance: TOPIRAMATE
     Indication: Product use in unapproved indication
     Dosage: UNK
     Dates: start: 20210831
  13. TIZANIDINE HYDROCHLORIDE [Concomitant]
     Active Substance: TIZANIDINE HYDROCHLORIDE
     Indication: Product use in unapproved indication
     Dosage: UNK
     Dates: start: 20220121

REACTIONS (7)
  - Mental impairment [Unknown]
  - Depression [Unknown]
  - Tremor [Unknown]
  - Pain [Unknown]
  - Nausea [Unknown]
  - Feeling abnormal [Unknown]
  - Malaise [Unknown]
